FAERS Safety Report 5084482-0 (Version None)
Quarter: 2006Q3

REPORT INFORMATION
  Report Type: 
  Country: None (occurrence: None)
  Receive Date: 20060821
  Receipt Date: 20060801
  Transmission Date: 20061208
  Serious: Yes (Death)
  Sender: FDA-Public Use
  Company Number: CA-AVENTIS-200614227EU

PATIENT
  Age: 60 Year
  Sex: Male

DRUGS (1)
  1. RILUTEK [Suspect]
     Route: 048

REACTIONS (1)
  - APLASTIC ANAEMIA [None]
